FAERS Safety Report 25477049 (Version 1)
Quarter: 2025Q2

REPORT INFORMATION
  Report Type: Report from Study
  Country: DE (occurrence: DE)
  Receive Date: 20250625
  Receipt Date: 20250625
  Transmission Date: 20250716
  Serious: Yes (Death, Other)
  Sender: JOHNSON AND JOHNSON
  Company Number: DE-JNJFOC-20250627397

PATIENT
  Age: 8 Decade
  Sex: Male

DRUGS (3)
  1. TREMFYA [Suspect]
     Active Substance: GUSELKUMAB
     Indication: Psoriasis
     Route: 058
     Dates: start: 20220501, end: 202409
  2. TREMFYA [Suspect]
     Active Substance: GUSELKUMAB
     Indication: Psoriatic arthropathy
  3. TREMFYA [Suspect]
     Active Substance: GUSELKUMAB

REACTIONS (8)
  - Pancreatic carcinoma [Fatal]
  - Arteriosclerosis coronary artery [Unknown]
  - Prostate cancer [Unknown]
  - Goitre [Unknown]
  - Hepatic steatosis [Unknown]
  - Diverticulum intestinal [Unknown]
  - Lipoma [Unknown]
  - Renal cyst [Unknown]

NARRATIVE: CASE EVENT DATE: 20240901
